FAERS Safety Report 25078550 (Version 1)
Quarter: 2025Q1

REPORT INFORMATION
  Report Type: Spontaneous
  Country: US (occurrence: US)
  Receive Date: 20250314
  Receipt Date: 20250314
  Transmission Date: 20250408
  Serious: No
  Sender: BAYER HEALTHCARE PHARMACEUTICALS INC.
  Company Number: US-BAYER-2025A028505

PATIENT
  Age: 90 Year
  Sex: Male

DRUGS (20)
  1. KERENDIA [Suspect]
     Active Substance: FINERENONE
     Indication: Chronic kidney disease
     Dosage: 20 MG, QD
     Dates: start: 202412
  2. VITAMINS [Concomitant]
     Active Substance: VITAMINS
     Indication: Renal tuberculosis
     Dates: start: 1999
  3. ALLOPURINOL [Concomitant]
     Active Substance: ALLOPURINOL
     Indication: Cardiac disorder
     Dates: start: 1999
  4. ALLOPURINOL [Concomitant]
     Active Substance: ALLOPURINOL
     Indication: Renal disorder
  5. ASPIRIN [Concomitant]
     Active Substance: ASPIRIN
     Indication: Cardiac disorder
     Dates: start: 1999
  6. ASPIRIN [Concomitant]
     Active Substance: ASPIRIN
     Indication: Renal disorder
  7. CARBIDOPA AND LEVODOPA [Concomitant]
     Active Substance: CARBIDOPA\LEVODOPA
     Indication: Cardiac disorder
     Dates: start: 1999
  8. CARBIDOPA AND LEVODOPA [Concomitant]
     Active Substance: CARBIDOPA\LEVODOPA
     Indication: Renal disorder
  9. LEVOTHYROXINE SODIUM [Concomitant]
     Active Substance: LEVOTHYROXINE SODIUM
     Indication: Renal disorder
     Dates: start: 1999
  10. LEVOTHYROXINE SODIUM [Concomitant]
     Active Substance: LEVOTHYROXINE SODIUM
     Indication: Cardiac disorder
  11. THYROXINE [Concomitant]
     Active Substance: LEVOTHYROXINE
     Indication: Hypothyroidism
     Dates: start: 1999
  12. THYROXINE [Concomitant]
     Active Substance: LEVOTHYROXINE
     Indication: Hyperthyroidism
  13. LOSARTAN [Concomitant]
     Active Substance: LOSARTAN
     Indication: Hypothyroidism
     Dates: start: 1999
  14. LOSARTAN [Concomitant]
     Active Substance: LOSARTAN
     Indication: Hyperthyroidism
  15. OMEPRAZOLE [Concomitant]
     Active Substance: OMEPRAZOLE
     Indication: Hypothyroidism
     Dates: start: 1999
  16. OMEPRAZOLE [Concomitant]
     Active Substance: OMEPRAZOLE
     Indication: Hyperthyroidism
  17. PRALUENT [Concomitant]
     Active Substance: ALIROCUMAB
     Indication: Hypothyroidism
     Dates: start: 1999
  18. PRALUENT [Concomitant]
     Active Substance: ALIROCUMAB
     Indication: Hyperthyroidism
  19. TORSEMIDE [Concomitant]
     Active Substance: TORSEMIDE
     Indication: Hypothyroidism
     Dates: start: 1999
  20. TORSEMIDE [Concomitant]
     Active Substance: TORSEMIDE
     Indication: Hyperthyroidism

REACTIONS (1)
  - Therapeutic response unexpected [None]
